FAERS Safety Report 7282435-5 (Version None)
Quarter: 2011Q1

REPORT INFORMATION
  Report Type: 
  Country: None (occurrence: None)
  Receive Date: 20110209
  Receipt Date: 20110201
  Transmission Date: 20110831
  Serious: Yes (Disabling)
  Sender: FDA-Public Use
  Company Number: FR-BRISTOL-MYERS SQUIBB COMPANY-15344740

PATIENT
  Age: 53 Year
  Sex: Male
  Weight: 53 kg

DRUGS (4)
  1. CISPLATIN [Suspect]
     Indication: HEAD AND NECK CANCER
     Dosage: LAST DOSE ON 03AUG2010 RECENT INF 100MG/M2 6TH INF 03AUG10.
     Route: 042
     Dates: start: 20100413
  2. CILENGITIDE [Suspect]
     Indication: HEAD AND NECK CANCER
     Dosage: LAST DOSE ON 11OCT2010.NO OF INFUSION:33 RECENT INF 2000MG/M2 36TH INF 27SEP10.
     Route: 042
     Dates: start: 20100413
  3. FLUOROURACIL [Suspect]
     Indication: HEAD AND NECK CANCER
     Dosage: CON INF FROM DAY 1 TO 4 CYCLE.LAST DOSE04AUG2010RECENT INF 1000MG/M2 6TH INF 05AUG10.
     Route: 042
     Dates: start: 20100414
  4. CETUXIMAB [Suspect]
     Indication: HEAD AND NECK CANCER
     Dosage: LAST DOSE ON 11OCT2010.NO OF INFUSION:20 RECENT INF 250MG/M2 17TH INF 27SEP10.
     Route: 042
     Dates: start: 20100413

REACTIONS (1)
  - BLOOD AMYLASE INCREASED [None]
